FAERS Safety Report 7294390-2 (Version None)
Quarter: 2011Q1

REPORT INFORMATION
  Report Type: 
  Country: None (occurrence: None)
  Receive Date: 20110215
  Receipt Date: 20110210
  Transmission Date: 20110831
  Serious: Yes (Death)
  Sender: FDA-Public Use
  Company Number: US-AMGEN-USASP2011000688

PATIENT
  Age: 78 Year
  Sex: Male

DRUGS (1)
  1. NPLATE [Suspect]
     Indication: IDIOPATHIC THROMBOCYTOPENIC PURPURA
     Dosage: 9 A?G, UNK
     Dates: start: 20100122, end: 20100319

REACTIONS (1)
  - MYELODYSPLASTIC SYNDROME [None]
